FAERS Safety Report 11613344 (Version 4)
Quarter: 2016Q1

REPORT INFORMATION
  Report Type: Report from Study
  Country: TR (occurrence: TR)
  Receive Date: 20151008
  Receipt Date: 20160205
  Transmission Date: 20160525
  Serious: Yes (Death, Hospitalization)
  Sender: FDA-Public Use
  Company Number: TR-ASTELLAS-2015US034167

PATIENT
  Age: 78 Year
  Sex: Male

DRUGS (7)
  1. ALYSE                              /01614101/ [Concomitant]
     Indication: ANALGESIC THERAPY
     Route: 048
     Dates: start: 201502
  2. COVERSYL                           /00790702/ [Concomitant]
     Active Substance: PERINDOPRIL
     Indication: HYPERTENSION
     Route: 048
     Dates: start: 2005
  3. VASOSERC [Concomitant]
     Indication: DIZZINESS
     Route: 048
     Dates: start: 201502
  4. PRABEX [Concomitant]
     Indication: PROPHYLAXIS
     Route: 048
  5. ENZALUTAMIDE [Suspect]
     Active Substance: ENZALUTAMIDE
     Indication: PROSTATE CANCER METASTATIC
     Route: 048
     Dates: start: 20150807, end: 20150922
  6. NAPROSYN [Concomitant]
     Active Substance: NAPROXEN
     Indication: ANALGESIC THERAPY
     Route: 048
     Dates: start: 201502
  7. ZOMETA [Concomitant]
     Active Substance: ZOLEDRONIC ACID
     Indication: METASTASES TO BONE
     Route: 042
     Dates: start: 20150401

REACTIONS (2)
  - Abdominal pain upper [Not Recovered/Not Resolved]
  - Hepatic function abnormal [Fatal]

NARRATIVE: CASE EVENT DATE: 20150919
